FAERS Safety Report 5154253-5 (Version None)
Quarter: 2006Q4

REPORT INFORMATION
  Report Type: 
  Country: None (occurrence: None)
  Receive Date: 20061120
  Receipt Date: 20061108
  Transmission Date: 20070319
  Serious: Yes (Death, Hospitalization)
  Sender: FDA-Public Use
  Company Number: BE-ELI_LILLY_AND_COMPANY-BE200611001344

PATIENT
  Age: 75 Year
  Sex: Female

DRUGS (7)
  1. CYMBALTA [Suspect]
     Indication: DEPRESSION
     Dosage: 60 MG, DAILY (1/D)
     Route: 048
  2. ASAFLOW [Concomitant]
  3. IBUPROFEN [Concomitant]
  4. CONTRAMAL [Concomitant]
  5. RIVOTRIL                                /NOR/ [Concomitant]
  6. RISPERDAL /SWE/ [Concomitant]
  7. TENORMIN                                /NEZ/ [Concomitant]

REACTIONS (2)
  - SPINAL COLUMN STENOSIS [None]
  - SUDDEN DEATH [None]
